FAERS Safety Report 15340823 (Version 2)
Quarter: 2019Q1

REPORT INFORMATION
  Report Type: Spontaneous
  Country: US (occurrence: US)
  Receive Date: 20180831
  Receipt Date: 20190107
  Transmission Date: 20190417
  Serious: No
  Sender: FDA-Public Use
  Company Number: US-SA-2018SA239774

PATIENT
  Age: 8 Year
  Sex: Male

DRUGS (2)
  1. FABRAZYME [Suspect]
     Active Substance: AGALSIDASE BETA
     Indication: FABRY^S DISEASE
     Dosage: 30 MG, QOW
     Route: 041
     Dates: start: 20180524, end: 20180816
  2. FABRAZYME [Suspect]
     Active Substance: AGALSIDASE BETA
     Dosage: 30 MG, QOW
     Route: 041
     Dates: start: 20181227

REACTIONS (4)
  - Throat tightness [Unknown]
  - Ill-defined disorder [Unknown]
  - Unevaluable event [Unknown]
  - Dysphagia [Unknown]

NARRATIVE: CASE EVENT DATE: 201808
